FAERS Safety Report 7973331-6 (Version None)
Quarter: 2011Q4

REPORT INFORMATION
  Report Type: 
  Country: None (occurrence: None)
  Receive Date: 20111213
  Receipt Date: 20110627
  Transmission Date: 20120403
  Serious: Yes (Other)
  Sender: FDA-Public Use
  Company Number: US-AMGEN-USASP2011032838

PATIENT
  Sex: Male

DRUGS (4)
  1. AGRYLIN [Concomitant]
  2. ARANESP [Suspect]
     Indication: MYELODYSPLASTIC SYNDROME
     Dosage: 500 MUG, Q3WK
     Dates: start: 20101001
  3. ARANESP [Suspect]
     Dosage: 300 MUG, Q2WK
  4. EXJADE [Concomitant]

REACTIONS (1)
  - DRUG INEFFECTIVE [None]
